FAERS Safety Report 5729555-1 (Version None)
Quarter: 2008Q2

REPORT INFORMATION
  Report Type: 
  Country: None (occurrence: None)
  Receive Date: 20080501
  Receipt Date: 20080417
  Transmission Date: 20081010
  Serious: No
  Sender: FDA-Public Use
  Company Number: US023342

PATIENT
  Age: 51 Year
  Sex: Female
  Weight: 47.6277 kg

DRUGS (7)
  1. FENTORA [Suspect]
     Indication: BLADDER PAIN
     Dosage: 200 UG BUCCAL
     Route: 002
  2. FENTORA [Suspect]
     Indication: CYSTITIS INTERSTITIAL
     Dosage: 200 UG BUCCAL
     Route: 002
  3. FENTORA [Suspect]
     Indication: BLADDER PAIN
     Dosage: 400 UG BUCCAL
     Route: 002
  4. FENTORA [Suspect]
     Indication: CYSTITIS INTERSTITIAL
     Dosage: 400 UG BUCCAL
     Route: 002
  5. DURAGESIC-100 [Concomitant]
  6. FENTANYL CITRATE [Concomitant]
  7. ELMIRON [Concomitant]

REACTIONS (1)
  - DRUG PRESCRIBING ERROR [None]
